FAERS Safety Report 8708818 (Version 2)
Quarter: 2015Q1

REPORT INFORMATION
  Report Type: Report from Study
  Country: US (occurrence: US)
  Receive Date: 20120806
  Receipt Date: 20150218
  Transmission Date: 20150721
  Serious: Yes (Hospitalization, Other)
  Sender: FDA-Public Use
  Company Number: US-ROCHE-1092152

PATIENT
  Sex: Male

DRUGS (19)
  1. FORADIL [Concomitant]
     Active Substance: FORMOTEROL FUMARATE
  2. UNIPHYL [Concomitant]
     Active Substance: THEOPHYLLINE ANHYDROUS
     Route: 065
  3. PRILOSEC [Concomitant]
     Active Substance: OMEPRAZOLE MAGNESIUM
  4. XOLAIR [Suspect]
     Active Substance: OMALIZUMAB
     Indication: ASTHMA
     Route: 058
  5. SINGULAIR [Concomitant]
     Active Substance: MONTELUKAST SODIUM
     Route: 065
  6. FLONASE (UNITED STATES) [Concomitant]
  7. THEOPHYLLINE [Concomitant]
     Active Substance: THEOPHYLLINE ANHYDROUS
  8. ENTEX (UNITED STATES) [Concomitant]
  9. PREDNISONE. [Concomitant]
     Active Substance: PREDNISONE
     Route: 065
  10. PREDNISONE. [Concomitant]
     Active Substance: PREDNISONE
     Route: 065
  11. UNIPHYL [Concomitant]
     Active Substance: THEOPHYLLINE ANHYDROUS
     Route: 065
  12. XOLAIR [Suspect]
     Active Substance: OMALIZUMAB
     Indication: RHINITIS ALLERGIC
     Dosage: EVERY OTHER WEEKS
     Route: 058
  13. UNIPHYL [Concomitant]
     Active Substance: THEOPHYLLINE ANHYDROUS
     Route: 065
  14. BIAXIN [Concomitant]
     Active Substance: CLARITHROMYCIN
     Route: 065
  15. PULMICORT TURBUHALER [Concomitant]
     Active Substance: BUDESONIDE
     Dosage: 4 INHALATION TWICE A DAY
     Route: 065
  16. GUAIFED [Concomitant]
  17. SPIRIVA [Concomitant]
     Active Substance: TIOTROPIUM BROMIDE MONOHYDRATE
     Route: 065
  18. ALBUTEROL. [Concomitant]
     Active Substance: ALBUTEROL
  19. CLARINEX (UNITED STATES) [Concomitant]
     Route: 065

REACTIONS (5)
  - Asthma [Unknown]
  - Hyperglycaemia [Unknown]
  - Respiratory distress [Unknown]
  - Myocardial infarction [Unknown]
  - Eczema [Unknown]
